FAERS Safety Report 4720226-7 (Version None)
Quarter: 2005Q3

REPORT INFORMATION
  Report Type: 
  Country: None (occurrence: None)
  Receive Date: 20050721
  Receipt Date: 20031217
  Transmission Date: 20060218
  Serious: Yes (Death, Other)
  Sender: FDA-Public Use
  Company Number: 200410632JP

PATIENT
  Age: 66 Year
  Sex: Male
  Weight: 57 kg

DRUGS (18)
  1. ARAVA [Suspect]
     Indication: RHEUMATOID ARTHRITIS
     Route: 048
     Dates: start: 20031023, end: 20040223
  2. RIMATIL [Concomitant]
     Route: 048
  3. BREDININ [Concomitant]
  4. VOLTAREN [Concomitant]
  5. LORCAM [Concomitant]
     Indication: INFLAMMATION
     Dates: end: 20040423
  6. MARZULENE S [Concomitant]
     Indication: GASTRITIS
     Route: 048
     Dates: end: 20040223
  7. SELTOUCH [Concomitant]
     Indication: INFLAMMATION
     Dates: end: 20040106
  8. ATELEC [Concomitant]
     Indication: HYPERTENSION
     Route: 048
     Dates: end: 20040223
  9. NU-LOTAN [Concomitant]
     Indication: HYPERTENSION
     Route: 048
     Dates: end: 20040223
  10. HARNAL [Concomitant]
     Dosage: DOSE: 1 CAPSULE
     Route: 048
     Dates: end: 20040223
  11. ADALAT [Concomitant]
     Indication: HYPERTENSION
     Route: 048
     Dates: start: 20040107, end: 20040223
  12. RIZABEN [Concomitant]
     Route: 048
     Dates: end: 20040223
  13. POLARAMINE [Concomitant]
     Route: 048
     Dates: end: 20040223
  14. LASIX [Concomitant]
     Route: 048
     Dates: start: 20040219, end: 20040223
  15. MEILAX [Concomitant]
     Route: 048
  16. ADALAT [Concomitant]
     Indication: HYPERTENSION
     Route: 048
     Dates: end: 20040223
  17. CARDENALIN [Concomitant]
     Route: 048
     Dates: start: 20040219, end: 20040223
  18. NITRODERM [Concomitant]
     Dates: start: 20040219, end: 20040223

REACTIONS (13)
  - ANGINA PECTORIS [None]
  - BLOOD CREATININE INCREASED [None]
  - BLOOD PRESSURE INCREASED [None]
  - BLOOD UREA INCREASED [None]
  - CARDIAC ARREST [None]
  - CARDIAC FAILURE [None]
  - CHEST X-RAY ABNORMAL [None]
  - CONDITION AGGRAVATED [None]
  - CORONARY ARTERY DISEASE [None]
  - DIARRHOEA [None]
  - HYPERTENSION [None]
  - INTERSTITIAL LUNG DISEASE [None]
  - PROTEINURIA [None]
